FAERS Safety Report 5502906-9 (Version None)
Quarter: 2007Q4

REPORT INFORMATION
  Report Type: 
  Country: None (occurrence: None)
  Receive Date: 20071029
  Receipt Date: 20071029
  Transmission Date: 20080405
  Serious: Yes (Other)
  Sender: FDA-Public Use
  Company Number: None

PATIENT
  Age: 60 Year
  Sex: Female
  Weight: 44.4525 kg

DRUGS (2)
  1. FLAGYL [Suspect]
     Indication: DIVERTICULITIS
     Dosage: 500MG  FOUR TIMES DAILY  PO
     Route: 048
     Dates: start: 20070820, end: 20071005
  2. AUGMENTIN -AMOXI/CLAV [Concomitant]

REACTIONS (2)
  - NEUROPATHY PERIPHERAL [None]
  - PAIN [None]
